FAERS Safety Report 10192114 (Version 1)
Quarter: 2014Q2

REPORT INFORMATION
  Report Type: Spontaneous
  Country: PL (occurrence: PL)
  Receive Date: 20140523
  Receipt Date: 20140523
  Transmission Date: 20141212
  Serious: Yes (Other)
  Sender: FDA-Public Use
  Company Number: PL-VERTEX PHARMACEUTICALS INC-2014-002424

PATIENT
  Age: 56 Year
  Sex: Male

DRUGS (3)
  1. INCIVO [Suspect]
     Indication: HEPATITIS C
     Dosage: 2250 MG, QD
     Route: 048
     Dates: start: 20131220, end: 20140220
  2. PEGASYS [Suspect]
     Indication: HEPATITIS C
     Dosage: 150 MG, QD
     Route: 065
     Dates: start: 20131220
  3. COPEGUS [Suspect]
     Indication: HEPATITIS C
     Dosage: 1000 MG, QD
     Route: 065
     Dates: start: 20131220

REACTIONS (2)
  - Eosinophilia [Recovering/Resolving]
  - Rash generalised [Recovering/Resolving]
